FAERS Safety Report 23592174 (Version 1)
Quarter: 2024Q1

REPORT INFORMATION
  Report Type: Spontaneous
  Country: US (occurrence: None)
  Receive Date: 20240304
  Receipt Date: 20240304
  Transmission Date: 20240410
  Serious: Yes (Hospitalization)
  Sender: FDA-Public Use
  Company Number: None

PATIENT
  Sex: Female

DRUGS (4)
  1. OPSUMIT [Suspect]
     Active Substance: MACITENTAN
     Indication: Pulmonary arterial hypertension
     Dosage: 10MG DAILY PO
     Route: 048
     Dates: start: 202301
  2. TYVASO [Suspect]
     Active Substance: TREPROSTINIL
  3. REMODULIN [Suspect]
     Active Substance: TREPROSTINIL
  4. SILDENAFIL [Concomitant]

REACTIONS (11)
  - Pain in jaw [None]
  - Headache [None]
  - Injection site pain [None]
  - Chest pain [None]
  - Cerebrovascular accident [None]
  - Wrong technique in product usage process [None]
  - Incorrect dose administered [None]
  - Treatment noncompliance [None]
  - Injection site erythema [None]
  - Injection site pain [None]
  - Hemiparesis [None]

NARRATIVE: CASE EVENT DATE: 20240301
